FAERS Safety Report 11132459 (Version 2)
Quarter: 2015Q2

REPORT INFORMATION
  Report Type: Spontaneous
  Country: UY (occurrence: UY)
  Receive Date: 20150522
  Receipt Date: 20150522
  Transmission Date: 20150821
  Serious: Yes (Hospitalization, Other)
  Sender: FDA-Public Use
  Company Number: UY-BAYER-2015-222750

PATIENT
  Age: 47 Year
  Sex: Male

DRUGS (1)
  1. NEXAVAR [Suspect]
     Active Substance: SORAFENIB
     Indication: RENAL CANCER
     Dosage: UNK
     Dates: start: 20150123

REACTIONS (7)
  - Back pain [None]
  - Scab [Not Recovered/Not Resolved]
  - Muscle spasms [Not Recovered/Not Resolved]
  - Dermatitis allergic [None]
  - Skin irritation [Not Recovered/Not Resolved]
  - Renal cancer [None]
  - Pain in extremity [Not Recovered/Not Resolved]
